FAERS Safety Report 7979204 (Version 2)
Quarter: 2017Q4

REPORT INFORMATION
  Report Type: Spontaneous
  Country: GB (occurrence: GB)
  Receive Date: 20110607
  Receipt Date: 20171012
  Transmission Date: 20180321
  Serious: Yes (Disabling, Other)
  Sender: FDA-Public Use
  Company Number: GB-BAYER-2011-047128

PATIENT
  Age: 39 Year
  Sex: Male

DRUGS (2)
  1. CIPROXIN [Suspect]
     Active Substance: CIPROFLOXACIN
     Indication: NERVE COMPRESSION
     Dosage: 750 MG, BID
     Dates: start: 201011
  2. DICLOFENAC [Concomitant]
     Active Substance: DICLOFENAC
     Indication: NERVE COMPRESSION
     Dosage: UNK

REACTIONS (29)
  - Proctalgia [None]
  - Dyskinesia [None]
  - Dizziness [None]
  - Axillary pain [None]
  - Lymphadenitis [None]
  - Gait disturbance [None]
  - Noninfective gingivitis [None]
  - Heart rate irregular [None]
  - Hyperacusis [None]
  - Arrhythmia [None]
  - Feeling cold [None]
  - Muscle twitching [None]
  - Tinnitus [None]
  - Formication [None]
  - Hallucination [None]
  - Tachycardia [None]
  - Bradycardia [None]
  - Disorientation [None]
  - Pruritus [None]
  - Perineal pain [None]
  - Haematochezia [None]
  - Mouth ulceration [None]
  - Panic attack [None]
  - Paraesthesia [None]
  - Injury [None]
  - Joint crepitation [None]
  - Skin burning sensation [None]
  - Headache [None]
  - Penile pain [None]

NARRATIVE: CASE EVENT DATE: 2010
